FAERS Safety Report 9311225 (Version 5)
Quarter: 2013Q3

REPORT INFORMATION
  Report Type: Report from Study
  Country: JP (occurrence: JP)
  Receive Date: 20130528
  Receipt Date: 20130913
  Transmission Date: 20140515
  Serious: Yes (Death)
  Sender: FDA-Public Use
  Company Number: JP-PFIZER INC-2013160856

PATIENT
  Age: 72 Year
  Sex: Female
  Weight: 40 kg

DRUGS (7)
  1. FOSPHENYTOIN SODIUM [Suspect]
     Indication: STATUS EPILEPTICUS
     Dosage: 1000 MG (DILUTED IN 100ML OF NORMAL SALINE) OVER 10 MINUTES
     Route: 042
     Dates: start: 20130515, end: 20130515
  2. WARFARIN [Concomitant]
     Indication: DISEASE COMPLICATION
     Dosage: 2 MG, UNK
     Route: 048
     Dates: end: 20130511
  3. MAINTATE [Concomitant]
     Indication: DISEASE COMPLICATION
     Dosage: 2.5 MG, UNK
     Route: 048
  4. LANSOPRAZOLE [Concomitant]
     Indication: DISEASE COMPLICATION
     Dosage: 15 MG, UNK
     Route: 048
     Dates: start: 20130512
  5. LANSOPRAZOLE [Concomitant]
     Indication: PROPHYLAXIS
  6. TEGRETOL [Concomitant]
     Indication: EPILEPSY
     Dosage: 200 MG, UNK
     Route: 048
     Dates: start: 20130514, end: 20130515
  7. CERCINE [Concomitant]
     Indication: EPILEPSY
     Dosage: 5 MG, UNK
     Dates: start: 20130511, end: 20130515

REACTIONS (1)
  - Cardiac arrest [Fatal]
